FAERS Safety Report 9676396 (Version 1)
Quarter: 2013Q4

REPORT INFORMATION
  Report Type: Spontaneous
  Country: US (occurrence: US)
  Receive Date: 20131107
  Receipt Date: 20131107
  Transmission Date: 20140711
  Serious: Yes (Hospitalization, Other)
  Sender: FDA-Public Use
  Company Number: US-ACTAVIS-2013-19836

PATIENT
  Sex: Female

DRUGS (8)
  1. ALENDRONATE SODIUM (WATSON LABORATORIES) [Suspect]
     Indication: OSTEOPOROSIS
     Dosage: UNK UNK, UNKNOWN
     Route: 048
     Dates: start: 200804, end: 20101016
  2. ALENDRONATE SODIUM (WATSON LABORATORIES) [Suspect]
     Indication: OSTEOPENIA
  3. FOSAMAX [Suspect]
     Indication: OSTEOPOROSIS
     Dosage: UNK UNK, UNKNOWN
     Route: 048
     Dates: end: 200305
  4. FOSAMAX [Suspect]
     Indication: OSTEOPENIA
  5. ACTONEL [Suspect]
     Indication: OSTEOPOROSIS
     Dosage: UNK UNK, UNKNOWN
     Route: 048
     Dates: start: 200305, end: 200707
  6. ACTONEL [Suspect]
     Indication: OSTEOPENIA
  7. BONIVA [Suspect]
     Indication: OSTEOPOROSIS
     Dosage: UNK, UNKNOWN
     Route: 048
     Dates: start: 200708, end: 200803
  8. BONIVA [Suspect]
     Indication: OSTEOPENIA

REACTIONS (2)
  - Femur fracture [Recovered/Resolved with Sequelae]
  - Pneumothorax [Unknown]
